FAERS Safety Report 8608253 (Version 4)
Quarter: 2012Q4

REPORT INFORMATION
  Report Type: 
  Country: FR (occurrence: FR)
  Receive Date: 20120611
  Receipt Date: 20120906
  Transmission Date: 20130627
  Serious: Yes (Hospitalization, Other)
  Sender: FDA-Public Use
  Company Number: PHHY2012FR048818

PATIENT
  Sex: Male

DRUGS (11)
  1. VOLTAREN [Suspect]
     Indication: ANKYLOSING SPONDYLITIS
     Dosage: 75 mg, QD
     Route: 048
     Dates: start: 2008, end: 20110727
  2. LANSOPRAZOLE [Suspect]
     Indication: ANKYLOSING SPONDYLITIS
     Dosage: 15 mg, QD
     Route: 048
     Dates: start: 2008, end: 20110908
  3. RIFATER [Suspect]
     Dosage: 5 DF daily
     Route: 048
     Dates: start: 20110215, end: 20110227
  4. RIFATER [Suspect]
     Dosage: 5 DF daily
     Dates: start: 20110315, end: 20110415
  5. MYAMBUTOL [Suspect]
     Dosage: 1200 mg, QD
     Route: 048
     Dates: start: 20110227, end: 20110315
  6. RIFINAH [Suspect]
     Dosage: 2 DF, QD
     Route: 049
     Dates: start: 20110415, end: 20110727
  7. RIFINAH [Suspect]
     Dosage: 2 DF, QD
     Route: 048
     Dates: start: 201107, end: 20110805
  8. CODEINE [Suspect]
     Indication: ARTHRALGIA
     Dosage: 1 DF, TID
     Route: 048
     Dates: end: 20110908
  9. REMICADE [Suspect]
     Indication: ANKYLOSING SPONDYLITIS
     Dosage: 5 mg/kg, every 15 days
     Route: 042
     Dates: start: 20110727
  10. REMICADE [Suspect]
     Dosage: 300 mg, ONCE/SINGLE
     Dates: start: 20110727
  11. REMICADE [Suspect]
     Dosage: 5 mg/kg, UNK
     Dates: start: 20110810

REACTIONS (5)
  - Oedema peripheral [Unknown]
  - Face oedema [Unknown]
  - Cholestasis [Recovering/Resolving]
  - Hepatomegaly [Recovering/Resolving]
  - Hepatocellular injury [Recovering/Resolving]
